FAERS Safety Report 4577408-7 (Version None)
Quarter: 2005Q1

REPORT INFORMATION
  Report Type: 
  Country: None (occurrence: None)
  Receive Date: 20050208
  Receipt Date: 20050128
  Transmission Date: 20050727
  Serious: Yes (Hospitalization)
  Sender: FDA-Public Use
  Company Number: DEWYE381731JAN05

PATIENT
  Age: 45 Year
  Sex: Female

DRUGS (5)
  1. CLIMAREST [Suspect]
     Dosage: 20 TABLES (OVERDOSE AMOUNT: 12.5 G), ORAL
     Route: 048
     Dates: start: 20050627, end: 20050128
  2. DIAZEPAM [Suspect]
     Dosage: 1 TABLET (10 MG) ORAL
     Route: 048
     Dates: start: 20050127, end: 20050128
  3. DIPIPERON (PIPAMPERONE) [Suspect]
     Dosage: 100 MG ,ORAL
     Route: 048
     Dates: start: 20050127, end: 20050128
  4. LEVOTHYROXINE SODIUM [Suspect]
     Dosage: 100 TABLETS (OVERDOSE AMOUNT: 12.5 G) ,ORAL
     Route: 048
     Dates: start: 20040127, end: 20050128
  5. ZYPREXA [Suspect]
     Dosage: 3 TABLETS (OVERDOSE AMOUNT: 30 MG), ORAL
     Route: 048
     Dates: start: 20050127, end: 20050128

REACTIONS (4)
  - APPETITE DISORDER [None]
  - ARRHYTHMIA [None]
  - FATIGUE [None]
  - INTENTIONAL MISUSE [None]
